FAERS Safety Report 9106563 (Version 1)
Quarter: 2013Q1

REPORT INFORMATION
  Report Type: Report from Study
  Country: FR (occurrence: FR)
  Receive Date: 20130221
  Receipt Date: 20130221
  Transmission Date: 20140127
  Serious: Yes (Hospitalization)
  Sender: FDA-Public Use
  Company Number: FR-ROCHE-1192812

PATIENT
  Age: 68 Year
  Sex: Female
  Weight: 90 kg

DRUGS (21)
  1. TOCILIZUMAB [Suspect]
     Indication: RHEUMATOID ARTHRITIS
     Route: 041
     Dates: start: 20110621
  2. TOCILIZUMAB [Suspect]
     Route: 065
     Dates: start: 20110909
  3. TOCILIZUMAB [Suspect]
     Route: 065
     Dates: start: 20111010
  4. TOCILIZUMAB [Suspect]
     Route: 065
     Dates: start: 20111110
  5. TOCILIZUMAB [Suspect]
     Route: 065
     Dates: start: 20111206
  6. TOCILIZUMAB [Suspect]
     Route: 065
     Dates: start: 20120106
  7. TOCILIZUMAB [Suspect]
     Route: 065
     Dates: start: 20120203
  8. TOCILIZUMAB [Suspect]
     Route: 065
     Dates: start: 20120302
  9. TOCILIZUMAB [Suspect]
     Route: 065
     Dates: start: 20120426
  10. TOCILIZUMAB [Suspect]
     Route: 065
     Dates: start: 20120524
  11. TOCILIZUMAB [Suspect]
     Route: 065
     Dates: start: 20120621
  12. BISOPROLOL [Concomitant]
     Route: 065
  13. LASILIX [Concomitant]
     Route: 065
  14. PERINDOPRIL [Concomitant]
     Route: 065
  15. IDEOS [Concomitant]
     Route: 065
  16. DIFFU K [Concomitant]
     Route: 065
  17. STILNOX [Concomitant]
     Route: 065
  18. INEXIUM [Concomitant]
     Route: 065
  19. ARAVA [Concomitant]
     Route: 065
  20. ARAVA [Concomitant]
     Route: 065
  21. UVEDOSE [Concomitant]
     Dosage: DOSE :100000 UI
     Route: 065

REACTIONS (3)
  - Acute pulmonary oedema [Recovered/Resolved]
  - Deep vein thrombosis [Recovered/Resolved]
  - Atrial fibrillation [Recovered/Resolved]
